FAERS Safety Report 16419430 (Version 2)
Quarter: 2019Q3

REPORT INFORMATION
  Report Type: Spontaneous
  Country: US (occurrence: US)
  Receive Date: 20190612
  Receipt Date: 20190809
  Transmission Date: 20191004
  Serious: Yes (Hospitalization, Other)
  Sender: FDA-Public Use
  Company Number: US-TORRENT-00008866

PATIENT
  Sex: Female

DRUGS (1)
  1. LOSARTAN AND HYDROCHLOROTHIAZIDE [Suspect]
     Active Substance: HYDROCHLOROTHIAZIDE\LOSARTAN POTASSIUM
     Indication: HYPERTENSION
     Dosage: ONE TABLET ONCE A DAY.
     Dates: end: 20190604

REACTIONS (13)
  - Nephrolithiasis [Unknown]
  - Oropharyngeal pain [Unknown]
  - Malaise [Unknown]
  - Abdominal pain upper [Unknown]
  - Anxiety [Unknown]
  - Nausea [Unknown]
  - Decreased appetite [Unknown]
  - Thrombosis [Unknown]
  - Weight decreased [Unknown]
  - Fatigue [Unknown]
  - Rhinorrhoea [Unknown]
  - Blood urine present [Unknown]
  - Dizziness [Unknown]
